FAERS Safety Report 11534992 (Version 1)
Quarter: 2015Q3

REPORT INFORMATION
  Report Type: Spontaneous
  Country: US (occurrence: None)
  Receive Date: 20150921
  Receipt Date: 20150921
  Transmission Date: 20151125
  Serious: Yes (Other)
  Sender: FDA-Public Use
  Company Number: None

PATIENT
  Age: 54 Year
  Sex: Female
  Weight: 53.52 kg

DRUGS (5)
  1. CHLORHEXIDINE GLUCONATE. [Concomitant]
     Active Substance: CHLORHEXIDINE GLUCONATE
  2. ECHINACEA [Concomitant]
     Active Substance: ECHINACEA, UNSPECIFIED
  3. DENTAGEL [Suspect]
     Active Substance: SODIUM FLUORIDE
     Indication: GINGIVITIS
     Dosage: AT BEDTIME 1 APPLICATION NIGHTLY
     Dates: start: 20150812, end: 20150918
  4. VITAMINS B6, C AND D [Concomitant]
  5. DENTAGEL [Concomitant]
     Active Substance: SODIUM FLUORIDE

REACTIONS (4)
  - Choking [None]
  - Throat irritation [None]
  - Salivary hypersecretion [None]
  - Cough [None]

NARRATIVE: CASE EVENT DATE: 20150918
